FAERS Safety Report 6300597-0 (Version None)
Quarter: 2009Q3

REPORT INFORMATION
  Report Type: 
  Country: None (occurrence: None)
  Receive Date: 20090806
  Receipt Date: 20090626
  Transmission Date: 20100115
  Serious: No
  Sender: FDA-Public Use
  Company Number: US-ABBOTT-09P-163-0582910-00

PATIENT
  Age: 30 Year
  Sex: Male

DRUGS (3)
  1. DEPAKOTE ER [Suspect]
     Indication: BIPOLAR DISORDER
     Route: 048
  2. DEPAKOTE ER [Suspect]
     Route: 048
     Dates: start: 20080101
  3. UNKNOWN ANTIPSYCHOTICS [Concomitant]
     Indication: DRUG USE FOR UNKNOWN INDICATION

REACTIONS (2)
  - BIPOLAR DISORDER [None]
  - THROMBOCYTOPENIA [None]
